FAERS Safety Report 19736741 (Version 1)
Quarter: 2021Q3

REPORT INFORMATION
  Report Type: Report from Study
  Country: US (occurrence: US)
  Receive Date: 20210823
  Receipt Date: 20210823
  Transmission Date: 20211014
  Serious: Yes (Other)
  Sender: FDA-Public Use
  Company Number: US-CLOVIS ONCOLOGY-CLO-2021-000768

PATIENT
  Sex: Female

DRUGS (3)
  1. RUBRACA [Suspect]
     Active Substance: RUCAPARIB CAMSYLATE
     Indication: FALLOPIAN TUBE CANCER
     Dosage: 600 MILLIGRAM, BID
     Route: 048
     Dates: start: 20200903
  2. RUBRACA [Suspect]
     Active Substance: RUCAPARIB CAMSYLATE
     Dosage: 600 MILLIGRAM, BID
     Route: 048
     Dates: start: 20200903
  3. RUBRACA [Suspect]
     Active Substance: RUCAPARIB CAMSYLATE
     Dosage: 600 MILLIGRAM, BID
     Route: 048
     Dates: start: 20200903

REACTIONS (5)
  - Pulmonary fibrosis [Not Recovered/Not Resolved]
  - Pain [Not Recovered/Not Resolved]
  - Sluggishness [Not Recovered/Not Resolved]
  - Accidental underdose [Unknown]
  - Pruritus [Not Recovered/Not Resolved]
